FAERS Safety Report 18320123 (Version 1)
Quarter: 2020Q3

REPORT INFORMATION
  Report Type: Spontaneous
  Country: US (occurrence: US)
  Receive Date: 20200928
  Receipt Date: 20200928
  Transmission Date: 20201103
  Serious: Yes (Hospitalization, Other)
  Sender: FDA-Public Use
  Company Number: US-009507513-2009USA010058

PATIENT
  Sex: Male

DRUGS (2)
  1. SINGULAIR [Suspect]
     Active Substance: MONTELUKAST SODIUM
     Indication: ASTHMA
     Dosage: UNK
     Dates: start: 201012, end: 201208
  2. SINGULAIR [Suspect]
     Active Substance: MONTELUKAST SODIUM
     Indication: SEASONAL ALLERGY

REACTIONS (8)
  - Intrusive thoughts [Unknown]
  - Major depression [Unknown]
  - Homicidal ideation [Unknown]
  - Obsessive-compulsive disorder [Unknown]
  - Egocentrism [Unknown]
  - Suicidal ideation [Unknown]
  - Anxiety disorder [Unknown]
  - Affect lability [Unknown]
